FAERS Safety Report 22329054 (Version 2)
Quarter: 2023Q2

REPORT INFORMATION
  Report Type: Report from Study
  Country: IT (occurrence: IT)
  Receive Date: 20230517
  Receipt Date: 20230524
  Transmission Date: 20230722
  Serious: Yes (Hospitalization)
  Sender: FDA-Public Use
  Company Number: IT-AMGEN-ITACT2023076139

PATIENT
  Age: 70 Year
  Sex: Male
  Weight: 75 kg

DRUGS (7)
  1. SOTORASIB [Suspect]
     Active Substance: SOTORASIB
     Indication: Colorectal cancer stage IV
     Dosage: 960 MILLIGRAM
     Route: 048
     Dates: start: 20221007
  2. PANITUMUMAB [Suspect]
     Active Substance: PANITUMUMAB
     Indication: Colorectal cancer stage IV
     Dosage: 450 MILLIGRAM
     Route: 042
     Dates: start: 20221007
  3. FLUTICASONE PROPIONATE\SALMETEROL XINAFOATE [Concomitant]
     Active Substance: FLUTICASONE PROPIONATE\SALMETEROL XINAFOATE
     Dosage: 1 UNK
     Route: 048
     Dates: start: 20180505
  4. MINOCLIN [Concomitant]
     Dosage: 100 MILLIGRAM
     Route: 048
     Dates: start: 20221007
  5. BIOTAD [Concomitant]
     Dosage: 1 UNK
     Route: 048
     Dates: start: 20230324
  6. PANTOPRAZOLE [Concomitant]
     Active Substance: PANTOPRAZOLE
     Dosage: 40 MILLIGRAM
     Route: 048
     Dates: start: 20230401
  7. PREDNISONE [Concomitant]
     Active Substance: PREDNISONE
     Dosage: 5-50 MILLIGRAM
     Route: 048
     Dates: start: 20230327, end: 20230414

REACTIONS (1)
  - Blood bilirubin increased [Recovered/Resolved]

NARRATIVE: CASE EVENT DATE: 20230427
